FAERS Safety Report 9010067 (Version 1)
Quarter: 2013Q1

REPORT INFORMATION
  Report Type: Other
  Country: FR (occurrence: FR)
  Receive Date: 20130110
  Receipt Date: 20130110
  Transmission Date: 20140127
  Serious: Yes (Death, Other)
  Sender: FDA-Public Use
  Company Number: FR-MILLENNIUM PHARMACEUTICALS, INC.-2013-00088

PATIENT
  Sex: 0

DRUGS (12)
  1. VELCADE [Suspect]
     Indication: PLASMA CELL MYELOMA
     Dosage: 1.3 MG/M2, UNK
     Route: 065
     Dates: start: 200902, end: 201106
  2. VELCADE [Suspect]
     Dosage: 1 MG/M2, UNK
     Route: 065
  3. VELCADE [Suspect]
     Dosage: 0.75 MG/M2, UNK
     Route: 065
     Dates: start: 201202
  4. MELPHALAN [Suspect]
     Indication: PRODUCT USED FOR UNKNOWN INDICATION
     Dosage: 14 MG, UNK
     Route: 065
     Dates: start: 200701, end: 200805
  5. MELPHALAN [Suspect]
     Dosage: 12 MG, UNK
     Dates: start: 201106, end: 201202
  6. DEXAMETHASONE [Suspect]
     Indication: PRODUCT USED FOR UNKNOWN INDICATION
     Dosage: 40 MG, UNK
     Route: 065
     Dates: start: 200902, end: 200910
  7. DEXAMETHASONE [Suspect]
     Dosage: 20 MG, UNK
     Route: 065
     Dates: start: 201009, end: 201106
  8. CYCLOPHOSPHAMIDE [Suspect]
     Indication: PRODUCT USED FOR UNKNOWN INDICATION
     Dosage: 3000 MG/M2, UNK
     Route: 065
     Dates: start: 200906, end: 200906
  9. REVLIMID [Suspect]
     Indication: PRODUCT USED FOR UNKNOWN INDICATION
     Dosage: 15 MG, UNK
     Route: 048
     Dates: start: 201010, end: 201106
  10. BENDAMUSTINE [Suspect]
     Indication: PRODUCT USED FOR UNKNOWN INDICATION
     Dosage: 150 MG/M2, UNK
     Route: 065
     Dates: start: 20120227
  11. PREDNISONE [Concomitant]
     Indication: PRODUCT USED FOR UNKNOWN INDICATION
     Dosage: 140 MG, UNK
     Dates: start: 200701, end: 200805
  12. PREDNISONE [Concomitant]
     Dosage: 100 UNK, UNK
     Dates: start: 201106

REACTIONS (3)
  - Death [Fatal]
  - Acute leukaemia [Fatal]
  - Plasma cell myeloma [Unknown]
